FAERS Safety Report 5329846-2 (Version None)
Quarter: 2007Q2

REPORT INFORMATION
  Report Type: 
  Country: None (occurrence: None)
  Receive Date: 20070517
  Receipt Date: 20070517
  Transmission Date: 20071010
  Serious: Yes (Life-Threatening)
  Sender: FDA-Public Use
  Company Number: None

PATIENT
  Age: 14 Year
  Sex: Female
  Weight: 72.5755 kg

DRUGS (1)
  1. ZOLOFT [Suspect]
     Indication: BIPOLAR I DISORDER
     Dosage: 50MG 1X/DAILY ORALLY
     Route: 048
     Dates: start: 19960110, end: 19960120

REACTIONS (4)
  - CRYING [None]
  - FEAR [None]
  - FEELING ABNORMAL [None]
  - NIGHTMARE [None]
